FAERS Safety Report 5042933-1 (Version None)
Quarter: 2006Q2

REPORT INFORMATION
  Report Type: 
  Country: None (occurrence: None)
  Receive Date: 20060627
  Receipt Date: 20060612
  Transmission Date: 20061013
  Serious: Yes (Death)
  Sender: FDA-Public Use
  Company Number: FI200606001894

PATIENT
  Age: 24 Year
  Sex: Male

DRUGS (3)
  1. ZYPREXA [Suspect]
     Indication: SCHIZOPHRENIA
     Dosage: 40 MG, DAILY (1/D), ORAL
     Route: 048
     Dates: end: 20060101
  2. DIAZEPAM [Concomitant]
  3. ZOPINOX (ZOPICLONE) [Concomitant]

REACTIONS (1)
  - OVERDOSE [None]
